FAERS Safety Report 16817307 (Version 1)
Quarter: 2019Q3

REPORT INFORMATION
  Report Type: Spontaneous
  Country: US (occurrence: US)
  Receive Date: 20190917
  Receipt Date: 20190917
  Transmission Date: 20191005
  Serious: No
  Sender: FDA-Public Use
  Company Number: US-PFIZER INC-2019395351

PATIENT
  Age: 52 Year
  Sex: Male
  Weight: 117.6 kg

DRUGS (3)
  1. VIAGRA [Suspect]
     Active Substance: SILDENAFIL CITRATE
     Indication: CARPAL TUNNEL SYNDROME
  2. VIAGRA [Suspect]
     Active Substance: SILDENAFIL CITRATE
     Indication: OBESITY
  3. VIAGRA [Suspect]
     Active Substance: SILDENAFIL CITRATE
     Indication: ERECTILE DYSFUNCTION
     Dosage: 100 MG, AS NEEDED (1 TAB BY MOUTH ONCE DAILY AS NEEDED)
     Route: 048

REACTIONS (1)
  - Hypoaesthesia [Unknown]
